FAERS Safety Report 8803838 (Version 2)
Quarter: 2013Q4

REPORT INFORMATION
  Report Type: Spontaneous
  Country: ES (occurrence: ES)
  Receive Date: 20120924
  Receipt Date: 20131126
  Transmission Date: 20140711
  Serious: Yes (Other)
  Sender: FDA-Public Use
  Company Number: ES-009507513-1205ESP00003

PATIENT
  Age: 24 Month
  Sex: Male
  Weight: 11 kg

DRUGS (8)
  1. SINGULAIR 4 MG GRANULADO [Suspect]
     Indication: BRONCHITIS
     Dosage: 4 MG, QD
     Route: 048
     Dates: start: 201204, end: 201204
  2. KEPPRA [Concomitant]
     Indication: ENCEPHALOPATHY
     Route: 048
  3. KEPPRA [Concomitant]
     Indication: CONVULSION
  4. AZITHROMYCIN [Concomitant]
     Indication: BRONCHITIS
     Dosage: UNK
     Route: 065
     Dates: start: 201204, end: 201204
  5. VENTOLIN (ALBUTEROL) [Concomitant]
     Indication: BRONCHITIS
     Route: 065
  6. LUMINALETAS [Concomitant]
     Indication: ENCEPHALOPATHY
     Route: 065
  7. GARDENAL [Concomitant]
     Indication: ENCEPHALOPATHY
     Dosage: UNK
     Route: 065
  8. SABRILEX [Concomitant]
     Indication: ENCEPHALOPATHY
     Route: 065

REACTIONS (2)
  - Status epilepticus [Recovered/Resolved]
  - Convulsion [Recovering/Resolving]
